FAERS Safety Report 8418021-0 (Version None)
Quarter: 2012Q2

REPORT INFORMATION
  Report Type: 
  Country: None (occurrence: None)
  Receive Date: 20120531
  Receipt Date: 20120531
  Transmission Date: 20120825
  Serious: Yes (Other)
  Sender: FDA-Public Use
  Company Number: None

PATIENT
  Age: 47 Year
  Sex: Female
  Weight: 61.2356 kg

DRUGS (1)
  1. LETROZOLE [Suspect]
     Indication: BREAST CANCER
     Dosage: 1 TABLET DAILY
     Dates: start: 20111228, end: 20120427

REACTIONS (7)
  - HEART RATE INCREASED [None]
  - ALOPECIA [None]
  - TREMOR [None]
  - VULVOVAGINAL DRYNESS [None]
  - URINARY TRACT INFECTION [None]
  - VULVOVAGINAL PAIN [None]
  - WEIGHT DECREASED [None]
